FAERS Safety Report 24716289 (Version 1)
Quarter: 2024Q4

REPORT INFORMATION
  Report Type: Report from Study
  Country: US (occurrence: US)
  Receive Date: 20241210
  Receipt Date: 20241210
  Transmission Date: 20250114
  Serious: Yes (Other)
  Sender: NOVARTIS
  Company Number: US-002147023-NVSC2024US233842

PATIENT
  Sex: Female
  Weight: 67.58 kg

DRUGS (2)
  1. KISQALI [Suspect]
     Active Substance: RIBOCICLIB
     Indication: Product used for unknown indication
     Dosage: 600 MG, QD
     Route: 048
  2. LETROZOLE [Suspect]
     Active Substance: LETROZOLE
     Indication: Product used for unknown indication
     Dosage: 2.5 MG, QD
     Route: 048

REACTIONS (12)
  - Electrocardiogram QT prolonged [Unknown]
  - Erythema [Unknown]
  - Post procedural persistent drain fluid [Unknown]
  - White blood cell count decreased [Unknown]
  - Red blood cell count decreased [Unknown]
  - Chills [Unknown]
  - Joint swelling [Unknown]
  - Headache [Unknown]
  - Asthenia [Unknown]
  - Decreased appetite [Unknown]
  - Fatigue [Unknown]
  - Infection [Unknown]
